FAERS Safety Report 7156909-1 (Version None)
Quarter: 2010Q4

REPORT INFORMATION
  Report Type: 
  Country: None (occurrence: None)
  Receive Date: 20101214
  Receipt Date: 20101202
  Transmission Date: 20110411
  Serious: Yes (Other)
  Sender: FDA-Public Use
  Company Number: PHHY2010GR81891

PATIENT
  Age: 57 Year
  Sex: Male

DRUGS (2)
  1. ZOMETA [Suspect]
     Indication: MULTIPLE MYELOMA
     Dosage: UNK
  2. THALIDOMIDE [Concomitant]

REACTIONS (2)
  - OSTEONECROSIS OF JAW [None]
  - TOOTHACHE [None]
